FAERS Safety Report 8571593-8 (Version None)
Quarter: 2012Q3

REPORT INFORMATION
  Report Type: 
  Country: None (occurrence: None)
  Receive Date: 20120806
  Receipt Date: 20120731
  Transmission Date: 20120928
  Serious: Yes (Other)
  Sender: FDA-Public Use
  Company Number: PHHY2012JP059596

PATIENT
  Age: 85 Year
  Sex: Male

DRUGS (4)
  1. ALUMINIUM HYDR GEL W/MAGNESIUM HYDROXIDE [Concomitant]
     Route: 048
  2. AMLODIPINE [Concomitant]
  3. DIOVAN HCT [Suspect]
     Indication: HYPERTENSION
     Dosage: 1 DF, DAILY
     Route: 048
     Dates: start: 20110301
  4. COSOPT [Suspect]
     Indication: GLAUCOMA
     Route: 047
     Dates: start: 20110601, end: 20120709

REACTIONS (1)
  - ASTHMA [None]
